FAERS Safety Report 16363779 (Version 1)
Quarter: 2019Q2

REPORT INFORMATION
  Report Type: Spontaneous
  Country: US (occurrence: US)
  Receive Date: 20190528
  Receipt Date: 20190528
  Transmission Date: 20190711
  Serious: Yes (Hospitalization)
  Sender: FDA-Public Use
  Company Number: US-TAKEDA-2019TUS032023

PATIENT
  Sex: Female

DRUGS (2)
  1. NINLARO [Suspect]
     Active Substance: IXAZOMIB CITRATE
     Indication: RENAL CANCER
     Dosage: 3 MILLIGRAM
     Route: 048
     Dates: start: 20190508
  2. NINLARO [Suspect]
     Active Substance: IXAZOMIB CITRATE
     Dosage: 5.3 MILLIGRAM, QD
     Route: 048

REACTIONS (4)
  - Pleural effusion [Unknown]
  - Hypotension [Unknown]
  - Pyrexia [Unknown]
  - Off label use [Unknown]
